FAERS Safety Report 4927330-9 (Version None)
Quarter: 2006Q1

REPORT INFORMATION
  Report Type: 
  Country: None (occurrence: None)
  Receive Date: 20060228
  Receipt Date: 20050803
  Transmission Date: 20060701
  Serious: No
  Sender: FDA-Public Use
  Company Number: US-GLAXOSMITHKLINE-A0568797A

PATIENT
  Sex: Female

DRUGS (1)
  1. IMITREX [Suspect]

REACTIONS (1)
  - ACCIDENTAL NEEDLE STICK [None]
